FAERS Safety Report 25253378 (Version 2)
Quarter: 2025Q2

REPORT INFORMATION
  Report Type: Spontaneous
  Country: JP (occurrence: JP)
  Receive Date: 20250430
  Receipt Date: 20250519
  Transmission Date: 20250717
  Serious: Yes (Hospitalization)
  Sender: ABBVIE
  Company Number: JP-ABBVIE-6255423

PATIENT
  Age: 91 Year
  Sex: Male

DRUGS (7)
  1. SILODOSIN [Suspect]
     Active Substance: SILODOSIN
     Indication: Benign prostatic hyperplasia
     Route: 065
     Dates: start: 2021
  2. SILODOSIN [Suspect]
     Active Substance: SILODOSIN
     Indication: Benign prostatic hyperplasia
     Route: 065
  3. DUTASTERIDE [Concomitant]
     Active Substance: DUTASTERIDE
     Indication: Product used for unknown indication
     Route: 048
  4. VIBEGRON [Suspect]
     Active Substance: VIBEGRON
     Indication: Product used for unknown indication
     Dates: end: 20250228
  5. VIBEGRON [Suspect]
     Active Substance: VIBEGRON
     Indication: Product used for unknown indication
  6. IMIDAFENACIN [Suspect]
     Active Substance: IMIDAFENACIN
     Indication: Hypertonic bladder
     Dates: start: 20250228
  7. IMIDAFENACIN [Suspect]
     Active Substance: IMIDAFENACIN
     Indication: Hypertonic bladder
     Dates: start: 2021

REACTIONS (5)
  - Cerebral infarction [Recovered/Resolved with Sequelae]
  - Residual urine volume increased [Recovered/Resolved]
  - Urine output decreased [Unknown]
  - Abdominal pain lower [Unknown]
  - Urinary retention [Recovered/Resolved]

NARRATIVE: CASE EVENT DATE: 20250202
